FAERS Safety Report 25989359 (Version 1)
Quarter: 2025Q4

REPORT INFORMATION
  Report Type: Spontaneous
  Country: CN (occurrence: CN)
  Receive Date: 20251103
  Receipt Date: 20251103
  Transmission Date: 20260117
  Serious: Yes (Hospitalization, Other)
  Sender: MERCK SHARP & DOHME LLC
  Company Number: CN-009507513-2345279

PATIENT
  Age: 77 Year
  Sex: Male
  Weight: 55 kg

DRUGS (1)
  1. CILASTATIN SODIUM\IMIPENEM [Suspect]
     Active Substance: CILASTATIN SODIUM\IMIPENEM
     Indication: Anti-infective therapy
     Route: 041
     Dates: start: 20251013, end: 20251025

REACTIONS (4)
  - Tremor [Not Recovered/Not Resolved]
  - End stage renal disease [Unknown]
  - Pyrexia [Unknown]
  - Dysarthria [Not Recovered/Not Resolved]

NARRATIVE: CASE EVENT DATE: 20251001
